FAERS Safety Report 12465302 (Version 3)
Quarter: 2016Q3

REPORT INFORMATION
  Report Type: Spontaneous
  Country: BR (occurrence: BR)
  Receive Date: 20160614
  Receipt Date: 20160810
  Transmission Date: 20161109
  Serious: Yes (Hospitalization)
  Sender: FDA-Public Use
  Company Number: BR-PFIZER INC-2016291162

PATIENT
  Age: 43 Year
  Sex: Female
  Weight: 58.7 kg

DRUGS (7)
  1. FLUCONAZOLE. [Concomitant]
     Active Substance: FLUCONAZOLE
     Dosage: 200 MG, 1X/DAY
  2. BACTRIM [Concomitant]
     Active Substance: SULFAMETHOXAZOLE\TRIMETHOPRIM
     Dosage: 1 TABLET, ON MONDAY, WEDNESDAY AND FRIDAY
  3. IDARUBICIN HCL [Concomitant]
     Active Substance: IDARUBICIN HYDROCHLORIDE
     Dosage: 21 MG, UNK (12MG/M2)
  4. ZOFRAN [Concomitant]
     Active Substance: ONDANSETRON HYDROCHLORIDE
     Dosage: 8 MG, UNK (SECOND CYCLE)
  5. CYTARABINE. [Suspect]
     Active Substance: CYTARABINE
     Indication: ACUTE MYELOID LEUKAEMIA
     Dosage: 354 MG, FOR 24H (200MG/M2)
     Dates: start: 20160318
  6. VALACICLOVIR [Concomitant]
     Active Substance: VALACYCLOVIR HYDROCHLORIDE
     Dosage: 500 MG, 2X/DAY
  7. LEVOFLOXACIN. [Concomitant]
     Active Substance: LEVOFLOXACIN
     Dosage: 500 MG, 2X/DAY

REACTIONS (2)
  - Pruritus [Recovering/Resolving]
  - Skin lesion [Recovering/Resolving]
